FAERS Safety Report 7390414-2 (Version None)
Quarter: 2011Q2

REPORT INFORMATION
  Report Type: 
  Country: None (occurrence: None)
  Receive Date: 20110401
  Receipt Date: 20110325
  Transmission Date: 20111010
  Serious: Yes (Hospitalization)
  Sender: FDA-Public Use
  Company Number: TH-GILEAD-2011-0037912

PATIENT
  Sex: Female
  Weight: 41.65 kg

DRUGS (7)
  1. TRUVADA [Suspect]
     Indication: HIV INFECTION
     Route: 048
     Dates: start: 20090601, end: 20110322
  2. ANTIHISTAMINE [Concomitant]
     Indication: RHINORRHOEA
  3. ANTIHISTAMINE [Concomitant]
     Indication: NASAL CONGESTION
  4. PARACETAMOL/CHLORPHENIRAMINE [Concomitant]
     Indication: RHINORRHOEA
  5. PARACETAMOL [Concomitant]
     Indication: PYREXIA
  6. EFAVIRENZ [Suspect]
     Indication: HIV INFECTION
     Route: 048
     Dates: start: 20050618
  7. PARACETAMOL/CHLORPHENIRAMINE [Concomitant]
     Indication: NASAL CONGESTION

REACTIONS (1)
  - THROMBOCYTOPENIA [None]
